FAERS Safety Report 4835452-6 (Version None)
Quarter: 2005Q4

REPORT INFORMATION
  Report Type: 
  Country: None (occurrence: None)
  Receive Date: 20051122
  Receipt Date: 20051122
  Transmission Date: 20060501
  Serious: Yes (Other)
  Sender: FDA-Public Use
  Company Number: None

PATIENT
  Age: 46 Year
  Sex: Male
  Weight: 83.9154 kg

DRUGS (2)
  1. PROTOPIC [Suspect]
     Indication: DERMATITIS ATOPIC
     Dosage: APPROX. 1 GM EVERY 12 HOURS TOP
     Route: 061
     Dates: start: 20020105, end: 20020112
  2. PROTOPIC [Concomitant]

REACTIONS (1)
  - LYMPHADENOPATHY [None]
